APPROVED DRUG PRODUCT: VASOTEC
Active Ingredient: ENALAPRILAT
Strength: 1.25MG/ML **Federal Register determination that product was not discontinued or withdrawn for safety or effectiveness reasons**
Dosage Form/Route: INJECTABLE;INJECTION
Application: N019309 | Product #001
Applicant: BIOVAIL LABORATORIES INTERNATIONAL SRL
Approved: Feb 9, 1988 | RLD: Yes | RS: No | Type: DISCN